FAERS Safety Report 8554058-9 (Version None)
Quarter: 2012Q3

REPORT INFORMATION
  Report Type: 
  Country: None (occurrence: None)
  Receive Date: 20120731
  Receipt Date: 20120724
  Transmission Date: 20120928
  Serious: Yes (Death)
  Sender: FDA-Public Use
  Company Number: US-CELGENEUS-163-21880-12032256

PATIENT
  Sex: Female

DRUGS (4)
  1. MULTI-VITAMINS [Concomitant]
     Route: 065
  2. MS CONTIN [Concomitant]
     Route: 065
  3. RED BLOOD CELLS [Concomitant]
     Route: 041
     Dates: start: 20110201, end: 20120201
  4. REVLIMID [Suspect]
     Dosage: 5 MILLIGRAM
     Route: 048
     Dates: start: 20120216, end: 20120228

REACTIONS (1)
  - ACUTE MYELOID LEUKAEMIA [None]
